FAERS Safety Report 24678752 (Version 1)
Quarter: 2024Q4

REPORT INFORMATION
  Report Type: Spontaneous
  Country: US (occurrence: US)
  Receive Date: 20241129
  Receipt Date: 20241129
  Transmission Date: 20250115
  Serious: No
  Sender: ALEXION PHARMACEUTICALS
  Company Number: US-AstraZeneca-CH-00755089A

PATIENT

DRUGS (12)
  1. SOLIRIS [Suspect]
     Active Substance: ECULIZUMAB
     Indication: Paroxysmal nocturnal haemoglobinuria
     Dosage: UNK
     Route: 065
  2. SOLIRIS [Suspect]
     Active Substance: ECULIZUMAB
     Dosage: UNK
  3. SOLIRIS [Suspect]
     Active Substance: ECULIZUMAB
     Dosage: UNK
     Route: 065
  4. SOLIRIS [Suspect]
     Active Substance: ECULIZUMAB
     Dosage: UNK
  5. SOLIRIS [Suspect]
     Active Substance: ECULIZUMAB
     Dosage: 600 MILLIGRAM
     Route: 065
  6. SOLIRIS [Suspect]
     Active Substance: ECULIZUMAB
     Dosage: 600 MILLIGRAM
  7. SOLIRIS [Suspect]
     Active Substance: ECULIZUMAB
     Dosage: 600 MILLIGRAM
     Route: 065
  8. SOLIRIS [Suspect]
     Active Substance: ECULIZUMAB
     Dosage: 600 MILLIGRAM
  9. FOLIC ACID [Concomitant]
     Active Substance: FOLIC ACID
     Dosage: UNK
  10. FOLIC ACID [Concomitant]
     Active Substance: FOLIC ACID
     Dosage: UNK
     Route: 065
  11. B12 [Concomitant]
     Dosage: UNK
  12. B12 [Concomitant]
     Dosage: UNK
     Route: 065

REACTIONS (1)
  - Madarosis [Unknown]
